FAERS Safety Report 18169164 (Version 2)
Quarter: 2021Q1

REPORT INFORMATION
  Report Type: Report from Study
  Country: US (occurrence: US)
  Receive Date: 20200819
  Receipt Date: 20210215
  Transmission Date: 20210419
  Serious: Yes (Other)
  Sender: FDA-Public Use
  Company Number: US-EMD SERONO-9180193

PATIENT
  Age: 54 Year
  Sex: Male

DRUGS (1)
  1. MAVENCLAD [Suspect]
     Active Substance: CLADRIBINE
     Indication: MULTIPLE SCLEROSIS
     Dosage: YEAR ONE THERAPY.
     Route: 048
     Dates: start: 20200210

REACTIONS (7)
  - Anaemia [Unknown]
  - Aphasia [Unknown]
  - Chronic kidney disease [Unknown]
  - Haemangioma [Unknown]
  - White blood cell count decreased [Unknown]
  - Cognitive disorder [Unknown]
  - Cyst [Unknown]

NARRATIVE: CASE EVENT DATE: 2020
